FAERS Safety Report 21784412 (Version 2)
Quarter: 2023Q1

REPORT INFORMATION
  Report Type: Spontaneous
  Country: US (occurrence: US)
  Receive Date: 20221227
  Receipt Date: 20230103
  Transmission Date: 20230417
  Serious: Yes (Other)
  Sender: FDA-Public Use
  Company Number: US-JNJFOC-20221238812

PATIENT
  Age: 66 Year
  Sex: Male
  Weight: 91 kg

DRUGS (16)
  1. TECLISTAMAB [Suspect]
     Active Substance: TECLISTAMAB
     Indication: Plasma cell myeloma
     Dosage: LAST DOSE RECEIVED: 16-DEC-2022
     Route: 058
     Dates: start: 20221213
  2. TYLENOL EXTRA STRENGTH [Concomitant]
     Active Substance: ACETAMINOPHEN
     Indication: Premedication
  3. TYLENOL EXTRA STRENGTH [Concomitant]
     Active Substance: ACETAMINOPHEN
     Indication: Pyrexia
  4. BENADRYL [Concomitant]
     Active Substance: DIPHENHYDRAMINE HYDROCHLORIDE
  5. TYLENOL [Concomitant]
     Active Substance: ACETAMINOPHEN
  6. FAMOTIDINE [Concomitant]
     Active Substance: FAMOTIDINE
  7. DEXAMETHASONE [Concomitant]
     Active Substance: DEXAMETHASONE
  8. ALLOPURINOL [Concomitant]
     Active Substance: ALLOPURINOL
  9. ATORVASTATIN [Concomitant]
     Active Substance: ATORVASTATIN
  10. HYDROCHLOROTHIAZIDE [Concomitant]
     Active Substance: HYDROCHLOROTHIAZIDE
  11. MS CONTIN [Concomitant]
     Active Substance: MORPHINE SULFATE
  12. NICOTINE [Concomitant]
     Active Substance: NICOTINE
     Route: 062
  13. OLANZAPINE [Concomitant]
     Active Substance: OLANZAPINE
  14. PROTONIX [Concomitant]
     Active Substance: PANTOPRAZOLE SODIUM
  15. LYRICA [Concomitant]
     Active Substance: PREGABALIN
  16. SODIUM CHLORIDE [Concomitant]
     Active Substance: SODIUM CHLORIDE

REACTIONS (1)
  - Cytokine release syndrome [Unknown]
